FAERS Safety Report 5322551-8 (Version None)
Quarter: 2007Q2

REPORT INFORMATION
  Report Type: 
  Country: None (occurrence: None)
  Receive Date: 20070511
  Receipt Date: 20070509
  Transmission Date: 20071010
  Serious: Yes (Hospitalization)
  Sender: FDA-Public Use
  Company Number: HQWYE116810MAY07

PATIENT
  Sex: Male
  Weight: 85 kg

DRUGS (3)
  1. TYGACIL [Suspect]
     Indication: PNEUMONIA
     Dosage: 50 MG EVERY 12 HOURS
     Route: 042
  2. TYGACIL [Suspect]
     Indication: SOFT TISSUE INFECTION
  3. TYGACIL [Suspect]
     Indication: SKIN ULCER

REACTIONS (2)
  - DIARRHOEA [None]
  - GASTROINTESTINAL HAEMORRHAGE [None]
